FAERS Safety Report 7828582 (Version 3)
Quarter: 2014Q1

REPORT INFORMATION
  Report Type: Spontaneous
  Country: US (occurrence: US)
  Receive Date: 20110225
  Receipt Date: 20140122
  Transmission Date: 20141002
  Serious: Yes (Hospitalization, Other)
  Sender: FDA-Public Use
  Company Number: US-ROCHE-738889

PATIENT
  Age: 52 Year
  Sex: Male
  Weight: 68.9 kg

DRUGS (2)
  1. ACCUTANE [Suspect]
     Indication: ACNE
     Route: 065
     Dates: start: 19910101, end: 19930101
  2. ACCUTANE [Suspect]
     Route: 065
     Dates: start: 199407, end: 199409

REACTIONS (9)
  - Inflammatory bowel disease [Unknown]
  - Perirectal abscess [Unknown]
  - Anal fistula [Unknown]
  - Crohn^s disease [Unknown]
  - Anxiety [Unknown]
  - Gastrointestinal injury [Unknown]
  - Large intestine polyp [Unknown]
  - Anal fissure [Unknown]
  - Arthritis [Unknown]
